FAERS Safety Report 25159737 (Version 2)
Quarter: 2025Q3

REPORT INFORMATION
  Report Type: Spontaneous
  Country: EU (occurrence: EU)
  Receive Date: 20250404
  Receipt Date: 20250710
  Transmission Date: 20251021
  Serious: Yes (Life-Threatening, Other)
  Sender: RANBAXY
  Company Number: EU-AFSSAPS-BX2025000054

PATIENT
  Age: 38 Year
  Sex: Male
  Weight: 93.7 kg

DRUGS (2)
  1. MORPHINE [Suspect]
     Active Substance: MORPHINE
     Indication: Analgesic therapy
     Dosage: 1 MILLIGRAM, DAILY
     Route: 029
     Dates: start: 20241030, end: 20241219
  2. ROPIVACAINE [Suspect]
     Active Substance: ROPIVACAINE
     Indication: Analgesic therapy
     Dosage: 6 MILLIGRAM, DAILY
     Route: 029
     Dates: start: 20241218, end: 20241219

REACTIONS (2)
  - Coma [Recovered/Resolved]
  - Seizure [Recovered/Resolved]

NARRATIVE: CASE EVENT DATE: 20241219
